FAERS Safety Report 19982585 (Version 2)
Quarter: 2021Q4

REPORT INFORMATION
  Report Type: Spontaneous
  Country: US (occurrence: US)
  Receive Date: 20211021
  Receipt Date: 20211029
  Transmission Date: 20220303
  Serious: No
  Sender: FDA-Public Use
  Company Number: US-SANOFI-00814203

PATIENT
  Sex: Male

DRUGS (1)
  1. TOUJEO [Suspect]
     Active Substance: INSULIN GLARGINE
     Indication: Type 2 diabetes mellitus
     Dosage: 36 IU
     Route: 065

REACTIONS (5)
  - Cardiac disorder [Unknown]
  - Unevaluable event [Unknown]
  - Blood glucose abnormal [Unknown]
  - Needle issue [Unknown]
  - Device issue [Unknown]
